FAERS Safety Report 17484449 (Version 1)
Quarter: 2020Q1

REPORT INFORMATION
  Report Type: Spontaneous
  Country: IT (occurrence: IT)
  Receive Date: 20200302
  Receipt Date: 20200302
  Transmission Date: 20200409
  Serious: Yes (Other)
  Sender: FDA-Public Use
  Company Number: IT-PURACAP PHARMACEUTICAL LLC-2020EPC00076

PATIENT
  Age: 29 Year
  Sex: Female

DRUGS (4)
  1. IBUPROFEN. [Suspect]
     Active Substance: IBUPROFEN
     Dosage: 600 MG, 2X/DAY
     Route: 065
  2. AMOXICILLIN-CLAVULANIC ACID [Concomitant]
     Active Substance: AMOXICILLIN\CLAVULANIC ACID
     Indication: TOOTHACHE
     Dosage: 1 GR, 2X/DAY
     Route: 065
  3. IBUPROFEN. [Suspect]
     Active Substance: IBUPROFEN
     Indication: TOOTHACHE
     Dosage: 600 MG, 2X/DAY
     Route: 065
  4. AMOXICILLIN-CLAVULANIC ACID [Concomitant]
     Active Substance: AMOXICILLIN\CLAVULANIC ACID
     Dosage: 1 GR, 2X/DAY
     Route: 065

REACTIONS (1)
  - Meningitis aseptic [Recovered/Resolved]
